FAERS Safety Report 6354106-0 (Version None)
Quarter: 2009Q3

REPORT INFORMATION
  Report Type: 
  Country: None (occurrence: None)
  Receive Date: 20090914
  Receipt Date: 20090903
  Transmission Date: 20100115
  Serious: Yes (Other)
  Sender: FDA-Public Use
  Company Number: PHHY2009BR37623

PATIENT
  Sex: Female

DRUGS (1)
  1. TEGRETOL [Suspect]
     Dosage: 2% 100ML
     Route: 048
     Dates: start: 20090903

REACTIONS (3)
  - ASTHENIA [None]
  - EYE DISORDER [None]
  - SOMNOLENCE [None]
